FAERS Safety Report 5395917-8 (Version None)
Quarter: 2007Q3

REPORT INFORMATION
  Report Type: 
  Country: None (occurrence: None)
  Receive Date: 20070718
  Receipt Date: 20070326
  Transmission Date: 20080115
  Serious: Yes (Hospitalization, Other)
  Sender: FDA-Public Use
  Company Number: 2006126268

PATIENT
  Age: 64 Year
  Sex: Female

DRUGS (7)
  1. CELEBREX [Suspect]
     Indication: BACK PAIN
     Dosage: 400 MG (200 MG, 2 IN 1 D)
     Dates: start: 19990408, end: 20000413
  2. CELEBREX [Suspect]
     Indication: FIBROMYALGIA
     Dosage: 400 MG (200 MG, 2 IN 1 D)
     Dates: start: 19990408, end: 20000413
  3. CELEBREX [Suspect]
     Indication: INTERVERTEBRAL DISC DEGENERATION
     Dosage: 400 MG (200 MG, 2 IN 1 D)
     Dates: start: 19990408, end: 20000413
  4. CELEBREX [Suspect]
     Indication: OSTEOARTHRITIS
     Dosage: 400 MG (200 MG, 2 IN 1 D)
     Dates: start: 19990408, end: 20000413
  5. BEXTRA [Suspect]
  6. VIOXX [Suspect]
     Dosage: 25 MG (25 MG, 1 D)
     Dates: start: 20000413
  7. ACETAMINOPHEN/ASPIRIN/CAFFEINE (ACETYLSALICYLIC ACID, CAFFEINE, PARACE [Concomitant]

REACTIONS (1)
  - ACUTE MYOCARDIAL INFARCTION [None]
